FAERS Safety Report 6122021-3 (Version None)
Quarter: 2009Q1

REPORT INFORMATION
  Report Type: 
  Country: None (occurrence: None)
  Receive Date: 20090316
  Receipt Date: 20090223
  Transmission Date: 20090719
  Serious: Yes (Hospitalization)
  Sender: FDA-Public Use
  Company Number: 062750-2009-00003

PATIENT
  Sex: Male
  Weight: 23.587 kg

DRUGS (1)
  1. ZICAM COLD REMEDY RAPIDEMELTS + VITAMIN C [Suspect]
     Indication: COUGH
     Dosage: 1 SINGLE TABLET ORAL
     Route: 048
     Dates: start: 20090209, end: 20090212

REACTIONS (1)
  - DYSPNOEA [None]
